FAERS Safety Report 12948834 (Version 1)
Quarter: 2016Q4

REPORT INFORMATION
  Report Type: Spontaneous
  Country: US (occurrence: US)
  Receive Date: 20161116
  Receipt Date: 20161116
  Transmission Date: 20170207
  Serious: Yes (Hospitalization, Other)
  Sender: FDA-Public Use
  Company Number: PHHY2016US155111

PATIENT
  Age: 20 Year
  Sex: Male

DRUGS (3)
  1. LOPERAMIDE [Suspect]
     Active Substance: LOPERAMIDE
     Indication: DRUG ABUSE
  2. LOPERAMIDE [Suspect]
     Active Substance: LOPERAMIDE
     Indication: DRUG WITHDRAWAL SYNDROME
     Dosage: 48 MG, QMO
     Route: 065
  3. LOPERAMIDE [Suspect]
     Active Substance: LOPERAMIDE
     Indication: PROPHYLAXIS
     Dosage: 288 MG, QD
     Route: 065

REACTIONS (9)
  - Electrocardiogram QRS complex prolonged [Recovered/Resolved]
  - Drug abuse [Unknown]
  - Torsade de pointes [Recovered/Resolved]
  - Electrocardiogram QT prolonged [Recovered/Resolved]
  - Syncope [Recovered/Resolved]
  - Congestive cardiomyopathy [Recovered/Resolved]
  - Ventricular arrhythmia [Unknown]
  - Ventricular dysfunction [Unknown]
  - Intentional overdose [Unknown]
